FAERS Safety Report 23626255 (Version 1)
Quarter: 2024Q1

REPORT INFORMATION
  Report Type: Spontaneous
  Country: CA (occurrence: CA)
  Receive Date: 20240313
  Receipt Date: 20240313
  Transmission Date: 20240410
  Serious: Yes (Congenital Anomaly, Other)
  Sender: FDA-Public Use
  Company Number: CA-STRIDES ARCOLAB LIMITED-2024SP002860

PATIENT

DRUGS (7)
  1. PREDNISOLONE [Suspect]
     Active Substance: PREDNISOLONE
     Indication: Product used for unknown indication
     Dosage: UNK (PATIENT^S MOTHER RECEIVED PREDNISOLONE DURING PREGNANCY)
     Route: 064
  2. OMALIZUMAB [Suspect]
     Active Substance: OMALIZUMAB
     Indication: Product used for unknown indication
     Dosage: UNK (PATIENT^S MOTHER RECEIVED OMALIZUMAB DURING PREGNANCY)
     Route: 064
     Dates: start: 2009
  3. DUPILUMAB [Suspect]
     Active Substance: DUPILUMAB
     Indication: Product used for unknown indication
     Dosage: UNK (PATIENT^S MOTHER RECEIVED DUPILUMAB DURING PREGNANCY)
     Route: 064
     Dates: start: 2018
  4. MIRTAZAPINE [Suspect]
     Active Substance: MIRTAZAPINE
     Indication: Product used for unknown indication
     Dosage: UNK (PATIENT^S MOTHER RECEIVED MIRTAZAPINE DURING PREGNANCY)
     Route: 064
  5. FLUTICASONE FUROATE [Suspect]
     Active Substance: FLUTICASONE FUROATE
     Indication: Product used for unknown indication
     Dosage: UNK (PATIENT^S MOTHER RECEIVED FLUTICASONE FUROATE DURING PREGNANCY)
     Route: 064
  6. VILANTEROL [Suspect]
     Active Substance: VILANTEROL
     Indication: Product used for unknown indication
     Dosage: UNK (PATIENT^S MOTHER RECEIVED VILANTEROL DURING PREGNANCY)
     Route: 064
  7. TIOTROPIUM [Suspect]
     Active Substance: TIOTROPIUM
     Indication: Product used for unknown indication
     Dosage: UNK (PATIENT^S MOTHER RECEIVED TIOTROPIUM DURING PREGNANCY)
     Route: 064

REACTIONS (6)
  - Premature baby [Unknown]
  - Hypopituitarism foetal [Unknown]
  - Secondary hypogonadism [Unknown]
  - Pharyngeal disorder [Unknown]
  - Cleft palate [Unknown]
  - Foetal exposure during pregnancy [Unknown]
